FAERS Safety Report 15355491 (Version 1)
Quarter: 2018Q3

REPORT INFORMATION
  Report Type: Spontaneous
  Country: GB (occurrence: GB)
  Receive Date: 20180906
  Receipt Date: 20180906
  Transmission Date: 20181010
  Serious: Yes (Other)
  Sender: FDA-Public Use
  Company Number: GB-AUROBINDO-AUR-APL-2018-044314

PATIENT
  Age: 27 Year
  Sex: Male
  Weight: 52 kg

DRUGS (4)
  1. NAPROXEN. [Concomitant]
     Active Substance: NAPROXEN
     Indication: PRODUCT USED FOR UNKNOWN INDICATION
     Dosage: 2 DOSAGE FORM, DAILY (TAKE WITH FOOD.)
     Route: 065
     Dates: start: 20180627, end: 20180711
  2. MIRTAZAPINE FILM?COATED TABLET [Suspect]
     Active Substance: MIRTAZAPINE
     Indication: ANXIETY
     Dosage: 30 MILLIGRAM, DAILY
     Route: 065
     Dates: start: 20180731
  3. SALBUTAMOL [Concomitant]
     Active Substance: ALBUTEROL
     Indication: PRODUCT USED FOR UNKNOWN INDICATION
     Dosage: UNK, 2 PUFFS FOUR TIMES A DAY AS REQUIRED () ; AS NECESSARY
     Route: 055
     Dates: start: 20140930
  4. CODEINE PHOSPHATE [Concomitant]
     Active Substance: CODEINE PHOSPHATE
     Indication: PAIN
     Dosage: UNK, TAKE ONE TABLET UP TO FOUR TIMES DAILY
     Route: 065
     Dates: start: 20180627, end: 20180725

REACTIONS (1)
  - Bronchospasm [Recovered/Resolved]

NARRATIVE: CASE EVENT DATE: 20180801
